FAERS Safety Report 4601028-9 (Version None)
Quarter: 2005Q1

REPORT INFORMATION
  Report Type: 
  Country: None (occurrence: None)
  Receive Date: 20050307
  Receipt Date: 20050307
  Transmission Date: 20050727
  Serious: Yes (Death)
  Sender: FDA-Public Use
  Company Number: None

PATIENT
  Sex: Female
  Weight: 55.9 kg

DRUGS (3)
  1. TAXOL [Suspect]
     Indication: OVARIAN EPITHELIAL CANCER
     Dosage: 175 MGM/M2 IV Q 21 DAYS
     Route: 042
     Dates: start: 20050714
  2. CARBOPLATIN [Suspect]
     Dosage: AUC 5 IV Q 21 DAYS
     Route: 042
  3. DOXIL [Suspect]
     Dosage: 30 MGM/M2 IV EVERY OTHER CYCLES (1, 3, 5, 7)
     Route: 042

REACTIONS (20)
  - ABDOMINAL PAIN [None]
  - ANURIA [None]
  - ASCITES [None]
  - ATELECTASIS [None]
  - CARDIO-RESPIRATORY ARREST [None]
  - CHILLS [None]
  - CONSTIPATION [None]
  - DIALYSIS [None]
  - DYSPNOEA [None]
  - FEBRILE NEUTROPENIA [None]
  - GENERAL PHYSICAL HEALTH DETERIORATION [None]
  - LIVER FUNCTION TEST ABNORMAL [None]
  - MALAISE [None]
  - MENTAL STATUS CHANGES [None]
  - METASTATIC NEOPLASM [None]
  - NAUSEA [None]
  - PANCYTOPENIA [None]
  - PLEURAL EFFUSION [None]
  - RENAL FAILURE [None]
  - RENAL TUBULAR NECROSIS [None]
